FAERS Safety Report 18314019 (Version 1)
Quarter: 2020Q3

REPORT INFORMATION
  Report Type: Spontaneous
  Country: FR (occurrence: FR)
  Receive Date: 20200925
  Receipt Date: 20200925
  Transmission Date: 20201103
  Serious: Yes (Life-Threatening, Other)
  Sender: FDA-Public Use
  Company Number: FR-MYLANLABS-2020M1080988

PATIENT
  Age: 40 Year
  Sex: Male
  Weight: 75 kg

DRUGS (3)
  1. THERALENE [Suspect]
     Active Substance: TRIMEPRAZINE
     Indication: PRODUCT USED FOR UNKNOWN INDICATION
     Dosage: 30 MILLILITER, TOTAL
     Route: 048
     Dates: start: 20200719, end: 20200719
  2. CLOMIPRAMINE [Suspect]
     Active Substance: CLOMIPRAMINE
     Indication: PRODUCT USED FOR UNKNOWN INDICATION
     Dosage: 50 DOSAGE FORM, QD
     Route: 048
     Dates: start: 20200719, end: 20200719
  3. TRAMADOL. [Suspect]
     Active Substance: TRAMADOL
     Indication: PRODUCT USED FOR UNKNOWN INDICATION
     Dosage: 20 DOSAGE FORM, TOTAL
     Route: 048
     Dates: start: 20200719, end: 20200719

REACTIONS (6)
  - Electrocardiogram QT prolonged [Recovered/Resolved]
  - Coma [Recovered/Resolved]
  - Haemodynamic instability [Recovered/Resolved]
  - Poisoning deliberate [Unknown]
  - Cardiac failure [Recovered/Resolved]
  - Acute respiratory distress syndrome [Recovered/Resolved]

NARRATIVE: CASE EVENT DATE: 20200719
